FAERS Safety Report 5352385-X (Version None)
Quarter: 2007Q2

REPORT INFORMATION
  Report Type: 
  Country: None (occurrence: None)
  Receive Date: 20070607
  Receipt Date: 20070530
  Transmission Date: 20071010
  Serious: Yes (Hospitalization)
  Sender: FDA-Public Use
  Company Number: 2004-09-1362

PATIENT
  Age: 57 Year
  Sex: Male
  Weight: 95 kg

DRUGS (5)
  1. PEG-INTRON [Suspect]
     Indication: HEPATITIS C
     Dosage: 50  MCG; QW; SC
     Route: 058
     Dates: start: 20040730, end: 20040910
  2. PEG-INTRON [Suspect]
     Indication: HEPATITIS C
     Dosage: 50  MCG; QW; SC
     Route: 058
     Dates: start: 20041001
  3. NIFEDIPINE [Concomitant]
  4. SPIRONOLACTONE [Concomitant]
  5. ATENOLOL [Concomitant]

REACTIONS (5)
  - CHRONIC OBSTRUCTIVE PULMONARY DISEASE [None]
  - CONDITION AGGRAVATED [None]
  - INTERSTITIAL LUNG DISEASE [None]
  - LUNG ABSCESS [None]
  - PLATELET COUNT DECREASED [None]
